FAERS Safety Report 5443667-1 (Version None)
Quarter: 2007Q3

REPORT INFORMATION
  Report Type: 
  Country: None (occurrence: None)
  Receive Date: 20070905
  Receipt Date: 20070824
  Transmission Date: 20080115
  Serious: Yes (Hospitalization)
  Sender: FDA-Public Use
  Company Number: CHWYE214524AUG07

PATIENT
  Age: 71 Year
  Sex: Female

DRUGS (7)
  1. EFFEXOR [Suspect]
     Indication: DEPRESSION
     Route: 048
     Dates: end: 20070301
  2. EFFEXOR [Suspect]
     Route: 048
     Dates: start: 20070301
  3. METOPROLOL SUCCINATE [Concomitant]
     Route: 048
     Dates: end: 20070301
  4. METOPROLOL SUCCINATE [Concomitant]
     Route: 048
     Dates: start: 20070301
  5. COZAAR [Concomitant]
     Indication: ESSENTIAL HYPERTENSION
     Dosage: 25 MG/100 MG 1 TIME PER DAY
     Route: 048
  6. NADROPARIN CALCIUM [Suspect]
     Route: 058
     Dates: start: 20070301, end: 20070301
  7. CARDURA [Concomitant]
     Route: 048

REACTIONS (11)
  - ABDOMINAL DISTENSION [None]
  - BRAIN OEDEMA [None]
  - CEREBRAL HAEMORRHAGE [None]
  - CONFUSIONAL STATE [None]
  - DISORIENTATION [None]
  - HAEMATOMA [None]
  - HEADACHE [None]
  - NEUROLOGICAL SYMPTOM [None]
  - OEDEMA PERIPHERAL [None]
  - SOMNOLENCE [None]
  - TACHYCARDIA [None]
